FAERS Safety Report 9784022 (Version 2)
Quarter: 2014Q1

REPORT INFORMATION
  Report Type: Report from Study
  Country: US (occurrence: US)
  Receive Date: 20131226
  Receipt Date: 20140114
  Transmission Date: 20141002
  Serious: Yes (Hospitalization)
  Sender: FDA-Public Use
  Company Number: US-JNJFOC-20131213135

PATIENT
  Age: 15 Year
  Sex: Male
  Weight: 40.6 kg

DRUGS (14)
  1. REMICADE [Suspect]
     Indication: CROHN^S DISEASE
     Route: 042
     Dates: start: 20100202
  2. REMICADE [Suspect]
     Indication: CROHN^S DISEASE
     Route: 042
     Dates: start: 20130128, end: 20130128
  3. VITAMIN B6 [Concomitant]
     Route: 065
  4. VITAMIN D3 [Concomitant]
     Route: 065
  5. HUMIRA [Concomitant]
     Route: 065
     Dates: start: 20130208
  6. HUMIRA [Concomitant]
     Route: 065
     Dates: start: 201304
  7. GROWTH HORMONE [Concomitant]
     Route: 065
  8. LEXAPRO [Concomitant]
     Route: 065
  9. FERROUS SULFATE [Concomitant]
     Route: 065
  10. OMEPRAZOLE [Concomitant]
     Route: 065
  11. MAGNESIUM OXIDE [Concomitant]
     Route: 065
  12. MIRALAX [Concomitant]
     Route: 065
  13. ONDANSETRON [Concomitant]
     Route: 065
  14. AZATHIOPRINE [Concomitant]
     Route: 065

REACTIONS (1)
  - Crohn^s disease [Recovered/Resolved]
